FAERS Safety Report 5818370-6 (Version None)
Quarter: 2008Q3

REPORT INFORMATION
  Report Type: 
  Country: None (occurrence: None)
  Receive Date: 20080722
  Receipt Date: 20080710
  Transmission Date: 20090109
  Serious: Yes (Other)
  Sender: FDA-Public Use
  Company Number: GB-PFIZER INC-2008058688

PATIENT
  Age: 34 Year
  Sex: Female
  Weight: 63 kg

DRUGS (2)
  1. CHANTIX [Suspect]
     Indication: SMOKING CESSATION THERAPY
     Route: 048
     Dates: start: 20080312, end: 20080615
  2. DEPO-PROVERA [Concomitant]
     Route: 030

REACTIONS (4)
  - AGGRESSION [None]
  - DEPRESSED MOOD [None]
  - HYPERTENSION [None]
  - WITHDRAWAL SYNDROME [None]
